FAERS Safety Report 8389996-3 (Version None)
Quarter: 2012Q2

REPORT INFORMATION
  Report Type: 
  Country: None (occurrence: None)
  Receive Date: 20120516
  Receipt Date: 20120509
  Transmission Date: 20120825
  Serious: Yes (Hospitalization)
  Sender: FDA-Public Use
  Company Number: WAES 1205USA01471

PATIENT
  Age: 74 Year
  Sex: Female
  Weight: 78.9259 kg

DRUGS (21)
  1. VELCADE [Suspect]
     Indication: MULTIPLE MYELOMA
     Dosage: IV, 1.3 MG/M2,SC
     Route: 042
     Dates: start: 20120223, end: 20120315
  2. VELCADE [Suspect]
     Indication: MULTIPLE MYELOMA
     Dosage: IV, 1.3 MG/M2,SC
     Route: 042
     Dates: start: 20120220, end: 20120223
  3. VELCADE [Suspect]
     Indication: MULTIPLE MYELOMA
     Dosage: IV, 1.3 MG/M2,SC
     Route: 042
     Dates: start: 20120101, end: 20120201
  4. IMODIUM [Concomitant]
  5. ZOMETA [Concomitant]
  6. DECADRON [Suspect]
     Indication: MULTIPLE MYELOMA
     Dosage: 20 MG, UNK, PO
     Route: 048
     Dates: start: 20120109, end: 20120316
  7. COREG [Concomitant]
  8. NAPROXEN (ALEVE) [Concomitant]
  9. CHONDROITIN [Concomitant]
  10. CENTRUM [Concomitant]
  11. METAMUCIL-2 [Concomitant]
  12. PROTONIX [Concomitant]
  13. ASPIRIN [Concomitant]
  14. LASIX [Concomitant]
  15. CALCIUM [Concomitant]
  16. VITAMIN D [Concomitant]
  17. VALIUM [Concomitant]
  18. XANAX [Concomitant]
  19. GLUCOSAMINE [Concomitant]
  20. LISINOPRIL [Concomitant]
  21. VOTAMIN B COMPLEX [Concomitant]

REACTIONS (10)
  - PRODUCTIVE COUGH [None]
  - FATIGUE [None]
  - DIZZINESS [None]
  - PAIN IN JAW [None]
  - CHEST PAIN [None]
  - MALAISE [None]
  - CONDITION AGGRAVATED [None]
  - HYPOTENSION [None]
  - CARDIAC FAILURE CONGESTIVE [None]
  - ACUTE RESPIRATORY DISTRESS SYNDROME [None]
